FAERS Safety Report 16135732 (Version 1)
Quarter: 2019Q1

REPORT INFORMATION
  Report Type: Spontaneous
  Country: US (occurrence: US)
  Receive Date: 20190329
  Receipt Date: 20190329
  Transmission Date: 20190418
  Serious: Yes (Other)
  Sender: FDA-Public Use
  Company Number: US-PFIZER INC-2019131896

PATIENT
  Age: 43 Year
  Sex: Male

DRUGS (2)
  1. SILDENAFIL CITRATE. [Suspect]
     Active Substance: SILDENAFIL CITRATE
     Dosage: UNK
  2. ABILIFY [Suspect]
     Active Substance: ARIPIPRAZOLE
     Indication: POST-TRAUMATIC STRESS DISORDER
     Dosage: 20 MG, DAILY
     Route: 048
     Dates: start: 20111014, end: 20180915

REACTIONS (7)
  - Cerebrovascular accident [Not Recovered/Not Resolved]
  - Speech disorder [Unknown]
  - Abnormal behaviour [Unknown]
  - Sexual dysfunction [Unknown]
  - Vasculitis [Unknown]
  - Muscular weakness [Unknown]
  - Gambling [Unknown]

NARRATIVE: CASE EVENT DATE: 2011
